FAERS Safety Report 16050809 (Version 5)
Quarter: 2020Q2

REPORT INFORMATION
  Report Type: Spontaneous
  Country: US (occurrence: US)
  Receive Date: 20190308
  Receipt Date: 20200610
  Transmission Date: 20200713
  Serious: No
  Sender: FDA-Public Use
  Company Number: US-PFIZER INC-2019093841

PATIENT
  Age: 86 Year
  Sex: Female
  Weight: 122.4 kg

DRUGS (2)
  1. REVATIO [Suspect]
     Active Substance: SILDENAFIL CITRATE
     Indication: PULMONARY ARTERIAL HYPERTENSION
  2. REVATIO [Suspect]
     Active Substance: SILDENAFIL CITRATE
     Indication: CATHETERISATION CARDIAC
     Dosage: 20 MG, 3X/DAY
     Route: 048

REACTIONS (5)
  - Hypoacusis [Unknown]
  - Memory impairment [Unknown]
  - Amnesia [Unknown]
  - Intentional product misuse [Recovered/Resolved with Sequelae]
  - Visual impairment [Unknown]

NARRATIVE: CASE EVENT DATE: 2018
